FAERS Safety Report 6645759-8 (Version None)
Quarter: 2010Q1

REPORT INFORMATION
  Report Type: 
  Country: None (occurrence: None)
  Receive Date: 20100323
  Receipt Date: 20100314
  Transmission Date: 20100710
  Serious: Yes (Other)
  Sender: FDA-Public Use
  Company Number: ZA-NOVOPROD-305744

PATIENT
  Sex: Female

DRUGS (1)
  1. ACTRAPHANE HM [Suspect]
     Indication: DRUG USE FOR UNKNOWN INDICATION
     Dosage: 35U + 20U
     Dates: start: 20070328

REACTIONS (4)
  - INJECTION SITE INFECTION [None]
  - INJECTION SITE PAIN [None]
  - INJECTION SITE SCAR [None]
  - PRODUCT QUALITY ISSUE [None]
